FAERS Safety Report 9302761 (Version 1)
Quarter: 2013Q2

REPORT INFORMATION
  Report Type: Spontaneous
  Country: US (occurrence: US)
  Receive Date: 20130522
  Receipt Date: 20130522
  Transmission Date: 20140414
  Serious: Yes (Other)
  Sender: FDA-Public Use
  Company Number: PHEH2013US011127

PATIENT
  Sex: Male

DRUGS (9)
  1. DIOVAN [Suspect]
     Dosage: 160 MG
  2. HUMIRA [Concomitant]
  3. LYRICA [Concomitant]
  4. OXYCONTIN [Concomitant]
  5. PERCOCET [Concomitant]
  6. FOLIC ACID [Concomitant]
  7. METHOTREXATE [Concomitant]
  8. AMITRIPTYLINE [Concomitant]
  9. XANAX [Concomitant]

REACTIONS (3)
  - Spondyloarthropathy [Unknown]
  - IgA nephropathy [Unknown]
  - Metabolic syndrome [Unknown]
